FAERS Safety Report 14484415 (Version 1)
Quarter: 2018Q1

REPORT INFORMATION
  Report Type: Spontaneous
  Country: US (occurrence: US)
  Receive Date: 20180202
  Receipt Date: 20180202
  Transmission Date: 20180509
  Serious: Yes (Hospitalization)
  Sender: FDA-Public Use
  Company Number: None

PATIENT
  Age: 47 Year
  Sex: Male
  Weight: 130.5 kg

DRUGS (2)
  1. BUPRENORPHINE NALOXONE [Concomitant]
     Active Substance: BUPRENORPHINE\NALOXONE
  2. BUPRENORPHINE SL TABS [Suspect]
     Active Substance: BUPRENORPHINE HYDROCHLORIDE
     Indication: DRUG DEPENDENCE
     Route: 048

REACTIONS (3)
  - Nausea [None]
  - Headache [None]
  - Vomiting [None]

NARRATIVE: CASE EVENT DATE: 20170801
